FAERS Safety Report 9377006 (Version 1)
Quarter: 2013Q3

REPORT INFORMATION
  Report Type: Report from Study
  Country: DE (occurrence: DE)
  Receive Date: 20130701
  Receipt Date: 20130701
  Transmission Date: 20140515
  Serious: Yes (Hospitalization)
  Sender: FDA-Public Use
  Company Number: DE-PFIZER INC-2013143769

PATIENT
  Age: 64 Year
  Sex: Female
  Weight: 68 kg

DRUGS (4)
  1. IDARUBICIN HCL [Suspect]
     Indication: ACUTE MYELOID LEUKAEMIA
     Dosage: 17.5 MG, UNK
     Dates: start: 20130425, end: 20130427
  2. CYTARABINE [Suspect]
     Indication: ACUTE MYELOID LEUKAEMIA
     Dosage: 175 MG, UNK
     Dates: start: 20130425, end: 20130429
  3. ETOPOSIDE [Suspect]
     Indication: ACUTE MYELOID LEUKAEMIA
     Dosage: 175 MG, UNK
     Dates: start: 20130425, end: 20130427
  4. ATRA [Concomitant]
     Indication: ACUTE MYELOID LEUKAEMIA
     Dosage: 70MG/30MG
     Dates: start: 20130430, end: 20130520

REACTIONS (1)
  - Urinary tract infection [Recovered/Resolved]
